FAERS Safety Report 8843192 (Version 2)
Quarter: 2015Q2

REPORT INFORMATION
  Report Type: Report from Study
  Country: US (occurrence: US)
  Receive Date: 20121016
  Receipt Date: 20150423
  Transmission Date: 20150821
  Serious: Yes (Other)
  Sender: FDA-Public Use
  Company Number: US-ROCHE-1140167

PATIENT
  Sex: Male

DRUGS (2)
  1. NUTROPIN AQ [Suspect]
     Active Substance: SOMATROPIN
     Indication: DWARFISM
     Route: 058
     Dates: end: 20050407
  2. NUTROPIN AQ [Suspect]
     Active Substance: SOMATROPIN
     Route: 058
     Dates: start: 20050707

REACTIONS (4)
  - Dizziness [Unknown]
  - Headache [Unknown]
  - Fatigue [Unknown]
  - Central nervous system infection [Unknown]
